FAERS Safety Report 17255779 (Version 2)
Quarter: 2020Q1

REPORT INFORMATION
  Report Type: Spontaneous
  Country: FR (occurrence: FR)
  Receive Date: 20200110
  Receipt Date: 20200127
  Transmission Date: 20200409
  Serious: Yes (Other)
  Sender: FDA-Public Use
  Company Number: FR-TEVA-2020-FR-1164569

PATIENT
  Age: 16 Year
  Sex: Female
  Weight: 23 kg

DRUGS (3)
  1. ADVILMED 100 MG, COMPRIME ENROBE [Concomitant]
     Dosage: 1 DOSAGE FORMS
     Route: 048
     Dates: start: 20191122
  2. HYDROXYZINE TEVA 25 MG, COMPRIME PELLICULE SECABLE [Suspect]
     Active Substance: HYDROXYZINE HYDROCHLORIDE
     Indication: ANXIETY
     Dosage: IF NEED BE (12.75 MG PER DAY)
     Route: 048
     Dates: start: 20191128
  3. SERETIDE [Concomitant]
     Active Substance: FLUTICASONE PROPIONATE\SALMETEROL XINAFOATE
     Indication: CHRONIC RESPIRATORY FAILURE
     Dosage: 8 DOSAGE FORMS DAILY; 2 PUFFS MORNING AND EVENING
     Route: 055
     Dates: start: 2016

REACTIONS (3)
  - Vertigo [Recovered/Resolved]
  - Hallucination, visual [Recovered/Resolved]
  - Nausea [Recovered/Resolved]

NARRATIVE: CASE EVENT DATE: 20191128
